FAERS Safety Report 6234083-3 (Version None)
Quarter: 2009Q2

REPORT INFORMATION
  Report Type: 
  Country: None (occurrence: None)
  Receive Date: 20090612
  Receipt Date: 20090605
  Transmission Date: 20091009
  Serious: Yes (Hospitalization)
  Sender: FDA-Public Use
  Company Number: 2009SP012332

PATIENT
  Age: 41 Year
  Sex: Male
  Weight: 66 kg

DRUGS (2)
  1. PEG-INTRON [Suspect]
     Indication: HEPATITIS C
     Dosage: 80 MCG;QW;SC
     Route: 058
     Dates: start: 20070924, end: 20080223
  2. RIBAVIRIN [Suspect]
     Indication: HEPATITIS C
     Dosage: 125 GM;QD;PO
     Route: 048
     Dates: start: 20070924, end: 20090223

REACTIONS (6)
  - DIABETIC KETOACIDOSIS [None]
  - HAEMATOCRIT DECREASED [None]
  - HAEMOGLOBIN DECREASED [None]
  - HYPOVOLAEMIC SHOCK [None]
  - PLATELET COUNT DECREASED [None]
  - WHITE BLOOD CELL COUNT DECREASED [None]
